FAERS Safety Report 6526422-0 (Version None)
Quarter: 2009Q4

REPORT INFORMATION
  Report Type: 
  Country: None (occurrence: None)
  Receive Date: 20091229
  Receipt Date: 20091215
  Transmission Date: 20100525
  Serious: Yes (Other)
  Sender: FDA-Public Use
  Company Number: 2009120051

PATIENT
  Sex: Female

DRUGS (1)
  1. SOMA [Suspect]
     Dates: start: 20081001

REACTIONS (6)
  - BODY FAT DISORDER [None]
  - HYPOTONIA [None]
  - MUSCULAR WEAKNESS [None]
  - RECTAL PROLAPSE [None]
  - SKIN TURGOR DECREASED [None]
  - WEIGHT DECREASED [None]
